FAERS Safety Report 7045842-1 (Version None)
Quarter: 2010Q4

REPORT INFORMATION
  Report Type: 
  Country: None (occurrence: None)
  Receive Date: 20101014
  Receipt Date: 20100921
  Transmission Date: 20110411
  Serious: Yes (Other)
  Sender: FDA-Public Use
  Company Number: PHHY2010BR66336

PATIENT
  Age: 74 Year
  Sex: Female

DRUGS (10)
  1. VALSARTAN [Suspect]
     Dosage: 320 MG, UNK
  2. ASPIRIN [Concomitant]
     Dosage: 100 MG/DAY
  3. AMLODIPINE [Concomitant]
     Dosage: 10 MG, UNK
  4. LEVOTHYROXINE [Concomitant]
     Dosage: 125 ?G/DAY
  5. CLOPIDOGREL [Concomitant]
     Dosage: 75 MG/DAY
  6. ATORVASTATIN [Concomitant]
     Dosage: 40 MG/DAY
  7. ALPRAZOLAM [Concomitant]
     Dosage: 0.5 MG, UNK
  8. PROPATYLNITRATE [Concomitant]
     Dosage: 40 MG/DAY
  9. TRIMETAZIDINE [Concomitant]
  10. CLONIDINE [Concomitant]

REACTIONS (4)
  - CHEST PAIN [None]
  - HYPERTENSION [None]
  - OEDEMA PERIPHERAL [None]
  - RENAL ARTERY STENOSIS [None]
